FAERS Safety Report 6347041-5 (Version None)
Quarter: 2009Q3

REPORT INFORMATION
  Report Type: 
  Country: None (occurrence: None)
  Receive Date: 20090909
  Receipt Date: 20090909
  Transmission Date: 20100115
  Serious: Yes (Life-Threatening)
  Sender: FDA-Public Use
  Company Number: None

PATIENT
  Age: 89 Year
  Sex: Female
  Weight: 72.5755 kg

DRUGS (2)
  1. MORPHINE SULFATE [Suspect]
     Indication: PAIN
     Dosage: 5 MG -2.5 ML- EVERY HOUR PRN PO
     Route: 048
     Dates: start: 20090721, end: 20090722
  2. OXYCODONE HCL [Suspect]
     Indication: PAIN
     Dosage: 2 TAB -10 MG- EVERY 4 HOURS PRN PO
     Route: 048
     Dates: start: 20090721, end: 20090722

REACTIONS (4)
  - COMA [None]
  - DEPRESSED LEVEL OF CONSCIOUSNESS [None]
  - DRUG INTERACTION [None]
  - RESPIRATORY DEPRESSION [None]
